FAERS Safety Report 19899972 (Version 1)
Quarter: 2021Q3

REPORT INFORMATION
  Report Type: Spontaneous
  Country: US (occurrence: US)
  Receive Date: 20210929
  Receipt Date: 20210929
  Transmission Date: 20211014
  Serious: No
  Sender: FDA-Public Use
  Company Number: None

PATIENT
  Age: 22 Year
  Sex: Male

DRUGS (1)
  1. EVEROLIMUS TAB 5MG [Suspect]
     Active Substance: EVEROLIMUS
     Route: 048
     Dates: start: 2013

REACTIONS (6)
  - Therapy interrupted [None]
  - Seizure [None]
  - Stomatitis [None]
  - Fatigue [None]
  - Malaise [None]
  - Amnesia [None]

NARRATIVE: CASE EVENT DATE: 20210928
